FAERS Safety Report 5843865-9 (Version None)
Quarter: 2008Q3

REPORT INFORMATION
  Report Type: 
  Country: None (occurrence: None)
  Receive Date: 20080813
  Receipt Date: 20080807
  Transmission Date: 20090109
  Serious: Yes (Hospitalization)
  Sender: FDA-Public Use
  Company Number: PHHY2008GB17736

PATIENT
  Age: 60 Year
  Sex: Female

DRUGS (8)
  1. TEGRETOL [Suspect]
     Indication: CONVULSION
     Dosage: 300 MG, UNK
     Route: 048
     Dates: start: 20080707, end: 20080718
  2. PHENYTOIN SODIUM CAP [Suspect]
     Indication: CONVULSION
     Dosage: 200 MG, BID
     Dates: start: 20080703, end: 20080707
  3. CEFTRIAXONE [Concomitant]
  4. DIAZEPAM [Concomitant]
  5. DIHYDROCODEINE [Concomitant]
  6. NIMODIPINE [Concomitant]
  7. PARACETAMOL [Concomitant]
  8. CHLORPHENIRAMINE MALEATE [Concomitant]

REACTIONS (3)
  - RASH ERYTHEMATOUS [None]
  - RASH MACULO-PAPULAR [None]
  - RASH PRURITIC [None]
